FAERS Safety Report 9126535 (Version 1)
Quarter: 2013Q1

REPORT INFORMATION
  Report Type: Spontaneous
  Country: TR (occurrence: TR)
  Receive Date: 20130117
  Receipt Date: 20130117
  Transmission Date: 20140127
  Serious: Yes (Hospitalization)
  Sender: FDA-Public Use
  Company Number: TR-SANOFI-AVENTIS-200713893GDDC

PATIENT
  Age: 28 Year
  Sex: Female

DRUGS (3)
  1. CLOMIFENE CITRATE [Suspect]
     Indication: INFERTILITY
     Route: 048
     Dates: start: 2004, end: 2004
  2. CLOMIFENE CITRATE [Suspect]
     Indication: INFERTILITY
     Route: 048
     Dates: start: 200501
  3. NO MENTION OF CONCOMITANT DRUG [Concomitant]

REACTIONS (13)
  - Pancreatitis acute [Recovered/Resolved]
  - Lipase increased [Recovered/Resolved]
  - Amylase increased [Recovered/Resolved]
  - Abdominal tenderness [Recovered/Resolved]
  - Abdominal pain upper [Recovered/Resolved]
  - Nausea [Recovered/Resolved]
  - Vomiting [Recovered/Resolved]
  - Oedema [Recovered/Resolved]
  - Pancreatitis acute [Recovered/Resolved]
  - Nausea [Recovered/Resolved]
  - Amylase increased [Recovered/Resolved]
  - Abdominal tenderness [Recovered/Resolved]
  - Abdominal pain upper [Recovered/Resolved]
